FAERS Safety Report 14673076 (Version 2)
Quarter: 2018Q2

REPORT INFORMATION
  Report Type: Report from Study
  Country: GB (occurrence: GB)
  Receive Date: 20180323
  Receipt Date: 20180507
  Transmission Date: 20180711
  Serious: Yes (Other)
  Sender: FDA-Public Use
  Company Number: PHHY2018GB044357

PATIENT
  Sex: Female

DRUGS (1)
  1. COSENTYX [Suspect]
     Active Substance: SECUKINUMAB
     Indication: PSORIATIC ARTHROPATHY
     Dosage: 150 MG, ON WEEKS 0,1,2,3 AS DIRECTED
     Route: 058
     Dates: start: 20180219

REACTIONS (6)
  - Pruritus [Unknown]
  - Arthritis [Recovering/Resolving]
  - Psoriasis [Unknown]
  - Arthralgia [Recovering/Resolving]
  - Skin burning sensation [Unknown]
  - Hypersensitivity [Unknown]
